FAERS Safety Report 6379852-4 (Version None)
Quarter: 2009Q3

REPORT INFORMATION
  Report Type: 
  Country: None (occurrence: None)
  Receive Date: 20090928
  Receipt Date: 20090918
  Transmission Date: 20100115
  Serious: Yes (Disabling)
  Sender: FDA-Public Use
  Company Number: JP-ASTRAZENECA-2009SE10582

PATIENT
  Age: 73 Year
  Sex: Female

DRUGS (5)
  1. OMEPRAL [Suspect]
     Indication: REFLUX OESOPHAGITIS
     Route: 048
  2. LIPITOR [Concomitant]
     Route: 048
  3. WARFARIN POTASSIUM [Concomitant]
     Route: 048
  4. JUVELA [Concomitant]
     Route: 048
  5. SINGULAIR [Concomitant]
     Route: 048

REACTIONS (1)
  - HYPOKALAEMIA [None]
